FAERS Safety Report 9267275 (Version 1)
Quarter: 2013Q2

REPORT INFORMATION
  Report Type: Spontaneous
  Country: US (occurrence: US)
  Receive Date: 20130502
  Receipt Date: 20130502
  Transmission Date: 20140414
  Serious: No
  Sender: FDA-Public Use
  Company Number: US-BAYER-2013-054831

PATIENT
  Age: 89 Year
  Sex: Male
  Weight: 89.8 kg

DRUGS (9)
  1. ALEVE TABLET [Suspect]
     Indication: ARTHRITIS
     Dosage: 1 DF, PRN
     Route: 048
     Dates: start: 2012, end: 20130424
  2. BAYER ASPIRIN [Concomitant]
     Indication: ISCHAEMIC HEART DISEASE PROPHYLAXIS
     Dosage: 1 DF, QD
     Route: 048
  3. TOPROL [Concomitant]
  4. CRESTOR [Concomitant]
  5. NEXIUM [Concomitant]
  6. LEXAPRO [Concomitant]
  7. VITAMIN B12 (CYANOCOBALAMIN AND ANALOGUES) [Concomitant]
  8. VITAMIN C [Concomitant]
  9. VITAMIN D [Concomitant]

REACTIONS (2)
  - Confusional state [Recovered/Resolved]
  - Confusional state [Not Recovered/Not Resolved]
